FAERS Safety Report 8378635-3 (Version None)
Quarter: 2012Q2

REPORT INFORMATION
  Report Type: 
  Country: None (occurrence: None)
  Receive Date: 20120522
  Receipt Date: 20120221
  Transmission Date: 20120825
  Serious: No
  Sender: FDA-Public Use
  Company Number: US-ASTRAZENECA-2012SE13453

PATIENT
  Sex: Female

DRUGS (1)
  1. PRILOSEC [Suspect]
     Indication: GASTRITIS
     Route: 048
     Dates: start: 19960101

REACTIONS (3)
  - BLOOD CALCIUM DECREASED [None]
  - OFF LABEL USE [None]
  - NASOPHARYNGITIS [None]
